FAERS Safety Report 15552962 (Version 1)
Quarter: 2018Q4

REPORT INFORMATION
  Report Type: Spontaneous
  Country: GB (occurrence: GB)
  Receive Date: 20181025
  Receipt Date: 20181025
  Transmission Date: 20190205
  Serious: Yes (Other)
  Sender: FDA-Public Use
  Company Number: GB-CONCORDIA PHARMACEUTICALS INC.-E2B_00017105

PATIENT
  Age: 78 Year
  Sex: Female

DRUGS (11)
  1. ROSUVASTATIN CALCIUM. [Concomitant]
     Active Substance: ROSUVASTATIN CALCIUM
  2. RAMIPRIL. [Concomitant]
     Active Substance: RAMIPRIL
  3. DIGOXIN. [Concomitant]
     Active Substance: DIGOXIN
  4. SALBUTAMOL [Concomitant]
     Active Substance: ALBUTEROL
  5. BISOPROLOL [Concomitant]
     Active Substance: BISOPROLOL
  6. MESALAZINE [Concomitant]
     Active Substance: MESALAMINE
  7. WARFARIN [Concomitant]
     Active Substance: WARFARIN
  8. SERETIDE [Concomitant]
     Active Substance: FLUTICASONE PROPIONATE\SALMETEROL XINAFOATE
  9. LANSOPRAZOLE. [Concomitant]
     Active Substance: LANSOPRAZOLE
  10. PREDNISOLONE. [Suspect]
     Active Substance: PREDNISOLONE
     Indication: INFLAMMATORY BOWEL DISEASE
     Dosage: FOR ONE MONTH THEN REDUCE BY 1 WEEKLY TIL 0
     Route: 048
     Dates: start: 20180710, end: 20180924
  11. CALCICHEW D3 [Concomitant]
     Active Substance: CALCIUM\CHOLECALCIFEROL

REACTIONS (2)
  - Dyspnoea [Unknown]
  - Joint swelling [Unknown]

NARRATIVE: CASE EVENT DATE: 20180714
